FAERS Safety Report 5476543-9 (Version None)
Quarter: 2007Q3

REPORT INFORMATION
  Report Type: 
  Country: None (occurrence: None)
  Receive Date: 20070926
  Receipt Date: 20070202
  Transmission Date: 20080115
  Serious: Yes (Other)
  Sender: FDA-Public Use
  Company Number: 2007002085

PATIENT
  Age: 38 Year
  Sex: Female
  Weight: 44.5 kg

DRUGS (2)
  1. ZYRTEC [Suspect]
     Indication: FOOD ALLERGY
     Dosage: 10 MG (10 MG,1 IN 1 D), ORAL
     Route: 048
     Dates: start: 20061214, end: 20061224
  2. ALL OTHER THERAPEUTIC PRODUCTS (ALL OTHER THERAPEUTIC PRODUCTS) [Concomitant]

REACTIONS (2)
  - ANXIETY [None]
  - PANIC ATTACK [None]
